FAERS Safety Report 9346791 (Version 3)
Quarter: 2014Q2

REPORT INFORMATION
  Report Type: Spontaneous
  Country: US (occurrence: US)
  Receive Date: 20130613
  Receipt Date: 20140404
  Transmission Date: 20141212
  Serious: Yes (Hospitalization)
  Sender: FDA-Public Use
  Company Number: US-B.I. PHARMACEUTICALS,INC./RIDGEFIELD-2013-BI-16291BP

PATIENT
  Sex: Female
  Weight: 90.72 kg

DRUGS (18)
  1. PRADAXA [Suspect]
     Indication: ANTICOAGULANT THERAPY
     Dosage: 300 MG
     Route: 048
     Dates: start: 20120105, end: 20120430
  2. PRADAXA [Suspect]
     Indication: ATRIAL FIBRILLATION
  3. IBUPROFEN [Suspect]
     Indication: PRODUCT USED FOR UNKNOWN INDICATION
     Dosage: 400 MG
     Route: 065
  4. CELEBREX [Suspect]
     Indication: PRODUCT USED FOR UNKNOWN INDICATION
     Route: 065
  5. AMIODARONE [Concomitant]
     Route: 065
  6. METOPROLOL [Concomitant]
     Route: 065
     Dates: start: 1993, end: 2012
  7. MVI [Concomitant]
     Route: 065
  8. SIMVASTATIN [Concomitant]
     Route: 065
     Dates: start: 1993, end: 2012
  9. FISH OIL [Concomitant]
     Route: 065
  10. VITAMIN D [Concomitant]
     Route: 065
  11. VITAMIN B12 [Concomitant]
     Route: 065
  12. JANUVIA [Concomitant]
     Route: 065
  13. LASIX [Concomitant]
     Route: 065
  14. AMBIEN [Concomitant]
     Route: 065
  15. B COMPLEX VITAMINS [Concomitant]
     Route: 065
  16. LOSARTAN [Concomitant]
     Route: 065
  17. ZOLPIDEM [Concomitant]
     Route: 065
  18. BABY ASPIRIN [Concomitant]
     Route: 065

REACTIONS (4)
  - Gastrointestinal haemorrhage [Recovered/Resolved]
  - Haemorrhagic anaemia [Unknown]
  - Contusion [Unknown]
  - Gingival bleeding [Unknown]
